FAERS Safety Report 6969897-5 (Version None)
Quarter: 2010Q3

REPORT INFORMATION
  Report Type: 
  Country: None (occurrence: None)
  Receive Date: 20100908
  Receipt Date: 20100830
  Transmission Date: 20110219
  Serious: Yes (Hospitalization, Other)
  Sender: FDA-Public Use
  Company Number: US-TEVA-246729USA

PATIENT
  Age: 9 Month
  Sex: Female

DRUGS (1)
  1. DILTIAZEM HYDROCHLORIDE 30 MG, 60 MG, 90 MG + 120 MG TABLETS [Suspect]

REACTIONS (3)
  - ATRIOVENTRICULAR BLOCK [None]
  - BRADYCARDIA [None]
  - OVERDOSE [None]
